FAERS Safety Report 5146232-9 (Version None)
Quarter: 2006Q4

REPORT INFORMATION
  Report Type: 
  Country: None (occurrence: None)
  Receive Date: 20061108
  Receipt Date: 20061027
  Transmission Date: 20070319
  Serious: Yes (Hospitalization)
  Sender: FDA-Public Use
  Company Number: US-ELI_LILLY_AND_COMPANY-US200610005505

PATIENT
  Age: 49 Year
  Sex: Female

DRUGS (3)
  1. ZYPREXA [Suspect]
     Indication: SCHIZOPHRENIA
     Dosage: 15 MG, UNK
     Route: 048
     Dates: start: 19970101
  2. ZYPREXA [Suspect]
     Dosage: 30 MG, EACH EVENING
     Route: 048
     Dates: start: 19970101
  3. SEROQUEL [Concomitant]

REACTIONS (3)
  - DIABETES MELLITUS [None]
  - LOCALISED INFECTION [None]
  - PRESCRIBED OVERDOSE [None]
